FAERS Safety Report 9977598 (Version 1)
Quarter: 2014Q1

REPORT INFORMATION
  Report Type: Report from Study
  Country: US (occurrence: US)
  Receive Date: 20140306
  Receipt Date: 20140306
  Transmission Date: 20141002
  Serious: No
  Sender: FDA-Public Use
  Company Number: US-ABBVIE-13P-163-1163108-00

PATIENT
  Sex: Female

DRUGS (8)
  1. HUMIRA [Suspect]
     Indication: RHEUMATOID ARTHRITIS
     Dates: end: 201307
  2. NEURONTIN [Concomitant]
     Indication: SCIATIC NERVE NEUROPATHY
  3. CARDIZEM [Concomitant]
     Indication: HYPERTENSION
     Dosage: 120MG DAILY
  4. SPIRONOLACTONE [Concomitant]
     Indication: FLUID RETENTION
  5. KLONOPIN [Concomitant]
     Indication: SCIATICA
  6. PREMARIN [Concomitant]
     Indication: HORMONE REPLACEMENT THERAPY
     Dosage: 0.3 DAILY
  7. BACLOFEN [Concomitant]
     Indication: MUSCLE RELAXANT THERAPY
  8. ZYRTEC [Concomitant]
     Indication: HYPERSENSITIVITY
     Dosage: 10MG DAILY

REACTIONS (3)
  - Injection site bruising [Recovered/Resolved]
  - Injection site pruritus [Recovered/Resolved]
  - Oedema peripheral [Recovered/Resolved]
